FAERS Safety Report 9413808 (Version 2)
Quarter: 2013Q3

REPORT INFORMATION
  Report Type: Spontaneous
  Country: US (occurrence: US)
  Receive Date: 20130723
  Receipt Date: 20130927
  Transmission Date: 20140515
  Serious: Yes (Congenital Anomaly, Other)
  Sender: FDA-Public Use
  Company Number: US-PFIZER INC-2013212833

PATIENT
  Sex: Female

DRUGS (5)
  1. ZOLOFT [Suspect]
     Indication: DEPRESSION
     Dosage: UNK
     Route: 064
     Dates: start: 2001
  2. ROBITUSSIN DM [Concomitant]
     Dosage: UNK
     Route: 064
  3. CIPRO [Concomitant]
     Dosage: UNK
     Route: 064
  4. PRENATAL VITAMINS [Concomitant]
     Dosage: UNK
     Route: 064
  5. BIRTH CONTROL PILLS [Concomitant]
     Dosage: UNK
     Route: 064

REACTIONS (15)
  - Maternal exposure during pregnancy [Unknown]
  - Cleft palate [Unknown]
  - Congenital musculoskeletal anomaly [Unknown]
  - Limb malformation [Unknown]
  - Cataract congenital [Unknown]
  - Radial head dislocation [Unknown]
  - Joint dislocation [Unknown]
  - Cleft lip [Unknown]
  - Congenital anomaly [Unknown]
  - Congenital flat feet [Unknown]
  - Congenital nose malformation [Unknown]
  - Syndactyly [Unknown]
  - Tonsillar hypertrophy [Unknown]
  - Sleep apnoea syndrome [Unknown]
  - Lymphoid tissue hyperplasia [Unknown]
